FAERS Safety Report 4700886-7 (Version None)
Quarter: 2005Q2

REPORT INFORMATION
  Report Type: 
  Country: None (occurrence: None)
  Receive Date: 20050624
  Receipt Date: 20050608
  Transmission Date: 20051028
  Serious: Yes (Hospitalization)
  Sender: FDA-Public Use
  Company Number: 2005BI011143

PATIENT
  Sex: Female

DRUGS (4)
  1. AVONEX [Suspect]
     Indication: MULTIPLE SCLEROSIS
     Dosage: 30 UG;QW;IM; SEE IMAGE
     Route: 030
     Dates: start: 19971101, end: 20020101
  2. AVONEX [Suspect]
     Indication: MULTIPLE SCLEROSIS
     Dosage: 30 UG;QW;IM; SEE IMAGE
     Route: 030
     Dates: start: 20020101
  3. AVONEX [Suspect]
     Indication: MULTIPLE SCLEROSIS
     Dosage: IM
     Route: 030
  4. REBIF [Concomitant]

REACTIONS (4)
  - BLINDNESS [None]
  - BONE DISORDER [None]
  - PARALYSIS [None]
  - URINARY TRACT INFECTION [None]
